FAERS Safety Report 25951290 (Version 4)
Quarter: 2025Q4

REPORT INFORMATION
  Report Type: Report from Study
  Country: EU (occurrence: EU)
  Receive Date: 20251023
  Receipt Date: 20251112
  Transmission Date: 20260117
  Serious: Yes (Death, Other)
  Sender: ABBVIE
  Company Number: EU-ABBVIE-6513443

PATIENT
  Age: 80 Year
  Sex: Female
  Weight: 65 kg

DRUGS (2)
  1. CARBIDOPA\LEVODOPA [Suspect]
     Active Substance: CARBIDOPA\LEVODOPA
     Indication: Parkinson^s disease
     Route: 050
     Dates: start: 20180706
  2. CARBIDOPA\LEVODOPA [Suspect]
     Active Substance: CARBIDOPA\LEVODOPA

REACTIONS (10)
  - Death [Fatal]
  - Asthenia [Unknown]
  - Condition aggravated [Unknown]
  - Hyperhidrosis [Not Recovered/Not Resolved]
  - Hypotension [Not Recovered/Not Resolved]
  - Tachycardia [Not Recovered/Not Resolved]
  - Renal impairment [Unknown]
  - Sarcopenia [Unknown]
  - Decreased appetite [Unknown]
  - Food intolerance [Unknown]

NARRATIVE: CASE EVENT DATE: 20251020
